FAERS Safety Report 11230160 (Version 1)
Quarter: 2015Q3

REPORT INFORMATION
  Report Type: Report from Study
  Country: US (occurrence: US)
  Receive Date: 20150701
  Receipt Date: 20150701
  Transmission Date: 20151125
  Serious: Yes (Hospitalization)
  Sender: FDA-Public Use
  Company Number: US-ABBVIE-15K-163-1414995-00

PATIENT
  Age: 26 Year
  Sex: Male
  Weight: 79.9 kg

DRUGS (3)
  1. HUMIRA [Suspect]
     Active Substance: ADALIMUMAB
     Indication: CROHN^S DISEASE
     Route: 065
     Dates: start: 20150219
  2. OMEPRAZOLE. [Concomitant]
     Active Substance: OMEPRAZOLE
     Indication: PRODUCT USED FOR UNKNOWN INDICATION
  3. PREDNISONE. [Concomitant]
     Active Substance: PREDNISONE
     Indication: CROHN^S DISEASE

REACTIONS (6)
  - Intestinal stenosis [Unknown]
  - Drug ineffective [Recovering/Resolving]
  - Intestinal fibrosis [Unknown]
  - Abdominal pain [Unknown]
  - Infusion site extravasation [Recovering/Resolving]
  - Postoperative ileus [Recovering/Resolving]

NARRATIVE: CASE EVENT DATE: 2015
